FAERS Safety Report 14305213 (Version 1)
Quarter: 2017Q4

REPORT INFORMATION
  Report Type: Spontaneous
  Country: JP (occurrence: JP)
  Receive Date: 20171219
  Receipt Date: 20171219
  Transmission Date: 20180321
  Serious: Yes (Other)
  Sender: FDA-Public Use
  Company Number: JP-OTSUKA-009535

PATIENT
  Age: 64 Year
  Sex: Female
  Weight: 57 kg

DRUGS (11)
  1. BASEN [Concomitant]
     Active Substance: VOGLIBOSE
     Indication: HYPERGLYCAEMIA
     Dosage: UNK
     Route: 048
     Dates: start: 20100315, end: 20100531
  2. ABILIFY [Suspect]
     Active Substance: ARIPIPRAZOLE
     Indication: SENSORY DISTURBANCE
     Dosage: 6 MG, QD
     Route: 048
     Dates: start: 20100309, end: 20100315
  3. LANTUS [Concomitant]
     Active Substance: INSULIN GLARGINE
     Indication: HYPERGLYCAEMIA
     Dosage: UNK
     Route: 058
     Dates: start: 20100325, end: 20100507
  4. HUMALOG [Concomitant]
     Active Substance: INSULIN LISPRO
     Indication: PRODUCT USED FOR UNKNOWN INDICATION
     Dosage: UNK
     Route: 065
  5. ABILIFY [Suspect]
     Active Substance: ARIPIPRAZOLE
     Indication: HALLUCINATION, AUDITORY
     Dosage: 12 MG, QD
     Route: 048
     Dates: start: 20100316, end: 20100323
  6. PAXIL [Concomitant]
     Active Substance: PAROXETINE HYDROCHLORIDE
     Indication: DEPRESSIVE SYMPTOM
     Dosage: UNK
     Route: 048
     Dates: start: 20100315, end: 20100531
  7. FASTIC [Concomitant]
     Active Substance: NATEGLINIDE
     Indication: HYPERGLYCAEMIA
     Dosage: UNK
     Route: 048
     Dates: start: 20100315, end: 20100531
  8. TETRAMIDE [Concomitant]
     Active Substance: MIANSERIN
     Indication: DEPRESSIVE SYMPTOM
     Dosage: UNK
     Route: 048
     Dates: start: 20100315, end: 20100531
  9. ABILIFY [Suspect]
     Active Substance: ARIPIPRAZOLE
     Dosage: 12 MG, QD
     Route: 048
     Dates: start: 20100330
  10. SILECE [Concomitant]
     Active Substance: FLUNITRAZEPAM
     Indication: INSOMNIA
     Dosage: UNK
     Route: 065
     Dates: start: 20100315, end: 20100531
  11. ABILIFY [Suspect]
     Active Substance: ARIPIPRAZOLE
     Dosage: 15 MG, QD
     Route: 048
     Dates: start: 20100324, end: 20100329

REACTIONS (1)
  - Blood glucose increased [Recovered/Resolved]

NARRATIVE: CASE EVENT DATE: 20100315
